FAERS Safety Report 24273182 (Version 1)
Quarter: 2024Q3

REPORT INFORMATION
  Report Type: Spontaneous
  Country: PT (occurrence: PT)
  Receive Date: 20240902
  Receipt Date: 20240902
  Transmission Date: 20241016
  Serious: Yes (Hospitalization, Other)
  Sender: ACCORD
  Company Number: PT-EMA-DD-20240809-7482677-054327

PATIENT
  Age: 60 Year
  Sex: Female

DRUGS (9)
  1. CARBOPLATIN [Suspect]
     Active Substance: CARBOPLATIN
     Indication: Serous cystadenocarcinoma ovary
     Dates: start: 202004
  2. GEMCITABINE [Suspect]
     Active Substance: GEMCITABINE
     Indication: Serous cystadenocarcinoma ovary
     Dosage: UNK
     Dates: start: 202204
  3. PACLITAXEL [Suspect]
     Active Substance: PACLITAXEL
     Indication: Metastases to pleura
     Dates: start: 202308
  4. DOXORUBICIN [Suspect]
     Active Substance: DOXORUBICIN
     Indication: Serous cystadenocarcinoma ovary
     Dates: start: 202204
  5. AMOXICILLIN\CLAVULANIC ACID [Suspect]
     Active Substance: AMOXICILLIN\CLAVULANIC ACID
     Indication: Lower respiratory tract infection
     Dosage: UNK
  6. AZITHROMYCIN [Suspect]
     Active Substance: AZITHROMYCIN
     Indication: Lower respiratory tract infection
     Dosage: UNK
  7. BEVACIZUMAB [Suspect]
     Active Substance: BEVACIZUMAB
     Indication: Serous cystadenocarcinoma ovary
  8. PACLITAXEL [Suspect]
     Active Substance: PACLITAXEL
     Indication: Metastases to pleura
     Dates: start: 202004
  9. CARBOPLATIN [Suspect]
     Active Substance: CARBOPLATIN
     Indication: Serous cystadenocarcinoma ovary
     Dates: start: 202204

REACTIONS (2)
  - Organising pneumonia [Recovering/Resolving]
  - Disease progression [Not Recovered/Not Resolved]

NARRATIVE: CASE EVENT DATE: 20220401
